FAERS Safety Report 7638281-3 (Version None)
Quarter: 2011Q3

REPORT INFORMATION
  Report Type: 
  Country: None (occurrence: None)
  Receive Date: 20110727
  Receipt Date: 20110725
  Transmission Date: 20111222
  Serious: Yes (Other)
  Sender: FDA-Public Use
  Company Number: US-BRISTOL-MYERS SQUIBB COMPANY-15920994

PATIENT
  Age: 64 Year
  Sex: Male

DRUGS (1)
  1. COUMADIN [Suspect]
     Indication: CEREBROVASCULAR ACCIDENT
     Dosage: FOR 7 YEARS

REACTIONS (8)
  - RENAL DISORDER [None]
  - HEPATIC CIRRHOSIS [None]
  - LEUKOCYTOSIS [None]
  - LIVER DISORDER [None]
  - HEPATOMEGALY [None]
  - HEPATIC NEOPLASM [None]
  - ABDOMINAL PAIN [None]
  - GALLBLADDER DISORDER [None]
